FAERS Safety Report 4950016-1 (Version None)
Quarter: 2006Q1

REPORT INFORMATION
  Report Type: 
  Country: None (occurrence: None)
  Receive Date: 20060315
  Receipt Date: 20060223
  Transmission Date: 20060701
  Serious: Yes (Other)
  Sender: FDA-Public Use
  Company Number: DE200601001690

PATIENT
  Age: 78 Year
  Sex: Female
  Weight: 91 kg

DRUGS (7)
  1. YENTREVE (DULOXETINE HYDROCHLORIDE) CAPSULE [Suspect]
     Indication: URINARY INCONTINENCE
     Dosage: 2/D, ORAL
     Route: 048
     Dates: start: 20051203, end: 20051204
  2. DOPAMINERGIC AGENTS [Concomitant]
  3. AMARYL /SWE/(GLIMEPIRIDE) [Concomitant]
  4. TORSEMIDE [Concomitant]
  5. COAPROVEL  /GFR/(HYDROCHLOROTHIAZIDE, IRBESARTAN) [Concomitant]
  6. OMEPRAZOLE [Concomitant]
  7. NEBIVOLOL HCL [Concomitant]

REACTIONS (2)
  - DISEASE RECURRENCE [None]
  - PARKINSON'S DISEASE [None]
